FAERS Safety Report 7658663-3 (Version None)
Quarter: 2011Q3

REPORT INFORMATION
  Report Type: 
  Country: None (occurrence: None)
  Receive Date: 20110805
  Receipt Date: 20110801
  Transmission Date: 20111222
  Serious: Yes (Other)
  Sender: FDA-Public Use
  Company Number: FR-BRISTOL-MYERS SQUIBB COMPANY-15848955

PATIENT
  Age: 42 Year
  Sex: Female
  Weight: 49 kg

DRUGS (9)
  1. CLONAZEPAM [Concomitant]
  2. LEVOTHYROXINE SODIUM [Concomitant]
  3. NEXIUM [Concomitant]
  4. PREDNISONE [Concomitant]
  5. VITAMIN B-12 [Concomitant]
  6. ORENCIA [Suspect]
     Indication: RHEUMATOID ARTHRITIS
     Dosage: INITIALLY GIVEN 500MG 28SEP10-18JAN11(5INF),THEN 750 MG 17FEB11-10MAY11(4INF).500MG ON 09JUN11
     Route: 042
     Dates: start: 20100928
  7. TRAMADOL HCL [Concomitant]
     Dosage: 1DF:4 UINT NOS
  8. ALFACALCIDOL [Concomitant]
  9. ACETAMINOPHEN [Concomitant]

REACTIONS (4)
  - DYSGEUSIA [None]
  - THERMOHYPOAESTHESIA [None]
  - WEIGHT INCREASED [None]
  - PARAESTHESIA ORAL [None]
